FAERS Safety Report 15448722 (Version 10)
Quarter: 2020Q2

REPORT INFORMATION
  Report Type: Spontaneous
  Country: US (occurrence: US)
  Receive Date: 20180929
  Receipt Date: 20200428
  Transmission Date: 20200713
  Serious: Yes (Hospitalization, Other)
  Sender: FDA-Public Use
  Company Number: US-SA-2018SA270053

PATIENT
  Age: 87 Year
  Sex: Female

DRUGS (1)
  1. DUPIXENT [Suspect]
     Active Substance: DUPILUMAB
     Indication: DERMATITIS ATOPIC
     Dosage: 300 MG, QOW
     Route: 058
     Dates: start: 201809

REACTIONS (10)
  - Pruritus [Unknown]
  - Thermal burn [Unknown]
  - Cough [Unknown]
  - Limb operation [Unknown]
  - Furuncle [Unknown]
  - Neoplasm malignant [Unknown]
  - Staphylococcal infection [Unknown]
  - Localised infection [Unknown]
  - Blister [Unknown]
  - Injection site bruising [Unknown]

NARRATIVE: CASE EVENT DATE: 202003
